FAERS Safety Report 7012648-9 (Version None)
Quarter: 2010Q3

REPORT INFORMATION
  Report Type: 
  Country: None (occurrence: None)
  Receive Date: 20100924
  Receipt Date: 20100916
  Transmission Date: 20110219
  Serious: Yes (Other)
  Sender: FDA-Public Use
  Company Number: DE-ROCHE-720911

PATIENT
  Sex: Female

DRUGS (6)
  1. TRASTUZUMAB [Suspect]
     Indication: BREAST CANCER
     Dosage: LOADING DOSE.
     Route: 042
  2. TRASTUZUMAB [Suspect]
     Dosage: FORM: UNKNOWN.
     Route: 042
     Dates: start: 20100408
  3. LAPATINIB [Suspect]
     Indication: BREAST CANCER
     Dosage: FREQUENCY: UNKNOWN.FREQUENCY REPORTED: PER DAY.
     Route: 048
     Dates: start: 20100409
  4. PACLITAXEL [Suspect]
     Indication: BREAST CANCER
     Dosage: FORM : UNKNOWN.
     Route: 042
     Dates: start: 20100408
  5. EMBOLEX [Concomitant]
     Dosage: DRUG: MONO-EMBOLEX
  6. LMW HEPARIN [Concomitant]

REACTIONS (1)
  - ALANINE AMINOTRANSFERASE INCREASED [None]
